FAERS Safety Report 5334575-5 (Version None)
Quarter: 2007Q2

REPORT INFORMATION
  Report Type: 
  Country: None (occurrence: None)
  Receive Date: 20070525
  Receipt Date: 20070516
  Transmission Date: 20071010
  Serious: Yes (Hospitalization)
  Sender: FDA-Public Use
  Company Number: US-JNJFOC-20070504521

PATIENT
  Age: 69 Year
  Sex: Female

DRUGS (8)
  1. DURAGESIC-100 [Suspect]
     Indication: PAIN
     Route: 062
  2. REMERON [Concomitant]
     Indication: DEPRESSION
     Route: 048
  3. ELAVIL [Concomitant]
     Indication: DEPRESSION
     Route: 048
  4. LORAZEPAM [Concomitant]
     Indication: ANXIETY
     Route: 048
  5. PRIMIDONE [Concomitant]
     Indication: TREMOR
     Route: 048
  6. TEMAZEPAM [Concomitant]
     Indication: SLEEP DISORDER
     Dosage: EVERY NIGHT
     Route: 048
  7. MEPERIDINE HCL [Concomitant]
     Indication: BREAKTHROUGH PAIN
     Dosage: EVERY 4-6 HOURS
     Route: 048
  8. CYMBALTA [Concomitant]
     Indication: DEPRESSION
     Route: 048

REACTIONS (2)
  - INTERVERTEBRAL DISC PROTRUSION [None]
  - STOMACH DISCOMFORT [None]
